FAERS Safety Report 5510919-6 (Version None)
Quarter: 2007Q4

REPORT INFORMATION
  Report Type: 
  Country: None (occurrence: None)
  Receive Date: 20071106
  Receipt Date: 20071106
  Transmission Date: 20080405
  Serious: Yes (Other)
  Sender: FDA-Public Use
  Company Number: None

PATIENT
  Age: 29 Year
  Sex: Female
  Weight: 90.7194 kg

DRUGS (2)
  1. CIPRO [Suspect]
     Indication: URINARY TRACT INFECTION
  2. LEVAQUIN [Suspect]
     Indication: CHRONIC SINUSITIS
     Dosage: 7 DAY 1 DAY PO
     Route: 048

REACTIONS (6)
  - DRUG HYPERSENSITIVITY [None]
  - MUSCLE SPASMS [None]
  - MUSCLE STRAIN [None]
  - MUSCLE TWITCHING [None]
  - MYALGIA [None]
  - PHARMACEUTICAL PRODUCT COMPLAINT [None]
